FAERS Safety Report 17026059 (Version 1)
Quarter: 2019Q4

REPORT INFORMATION
  Report Type: Spontaneous
  Country: US (occurrence: US)
  Receive Date: 20191112
  Receipt Date: 20191112
  Transmission Date: 20200122
  Serious: Yes (Hospitalization, Disabling)
  Sender: FDA-Public Use
  Company Number: None

PATIENT
  Sex: Female
  Weight: 10.35 kg

DRUGS (17)
  1. CUVPOSA [Concomitant]
     Active Substance: GLYCOPYRROLATE
  2. POLYVITAMIN WITH FLUORIDE [Concomitant]
  3. TYLENOL [Concomitant]
     Active Substance: ACETAMINOPHEN
  4. FLUTICASONE SPRAY [Concomitant]
     Active Substance: FLUTICASONE
  5. MIRALAX [Concomitant]
     Active Substance: POLYETHYLENE GLYCOL 3350
  6. CPAP MACHINE [Concomitant]
  7. SENNA [Concomitant]
     Active Substance: SENNA LEAF\SENNOSIDES\SENNOSIDES A AND B
  8. ALIGN JR [Concomitant]
  9. ZOFRAN [Concomitant]
     Active Substance: ONDANSETRON HYDROCHLORIDE
  10. RANITIDINE 15 MG/ML SYRUP [Concomitant]
     Active Substance: RANITIDINE
     Dosage: ?          QUANTITY:2.5 ML;OTHER ROUTE:JEJUNOSTOMY TUBE?
     Dates: start: 20190524, end: 20191108
  11. PULSE OX [Concomitant]
  12. CLOBAZAM. [Concomitant]
     Active Substance: CLOBAZAM
  13. OMEPRAZOLE. [Concomitant]
     Active Substance: OMEPRAZOLE
  14. VENTOLIN HFA [Concomitant]
     Active Substance: ALBUTEROL SULFATE
  15. FLAGYL [Concomitant]
     Active Substance: METRONIDAZOLE\METRONIDAZOLE HYDROCHLORIDE
  16. MOTRIN [Concomitant]
     Active Substance: IBUPROFEN
  17. SUCTION MACHINE [Concomitant]

REACTIONS (5)
  - Nausea [None]
  - Discoloured vomit [None]
  - Pyrexia [None]
  - Abdominal pain [None]
  - Pain [None]
